FAERS Safety Report 10440611 (Version 3)
Quarter: 2017Q1

REPORT INFORMATION
  Report Type: Spontaneous
  Country: US (occurrence: US)
  Receive Date: 20140909
  Receipt Date: 20170309
  Transmission Date: 20170428
  Serious: Yes (Hospitalization, Other)
  Sender: FDA-Public Use
  Company Number: US-JNJFOC-20140902031

PATIENT
  Sex: Male

DRUGS (12)
  1. SIMVASTATIN. [Concomitant]
     Active Substance: SIMVASTATIN
  2. TORSEMIDE. [Concomitant]
     Active Substance: TORSEMIDE
  3. HYDRALAZINE HCL [Concomitant]
     Active Substance: HYDRALAZINE HYDROCHLORIDE
  4. METOPROLOL. [Concomitant]
     Active Substance: METOPROLOL
  5. WARFARIN [Concomitant]
     Active Substance: WARFARIN
  6. IMBRUVICA [Suspect]
     Active Substance: IBRUTINIB
     Indication: CHRONIC LYMPHOCYTIC LEUKAEMIA
     Route: 048
     Dates: start: 201407, end: 201408
  7. ISOSORBIDE. [Concomitant]
     Active Substance: ISOSORBIDE
  8. DIGOXIN. [Concomitant]
     Active Substance: DIGOXIN
  9. SPIRONOLACTONE. [Concomitant]
     Active Substance: SPIRONOLACTONE
  10. SYNTHROID [Concomitant]
     Active Substance: LEVOTHYROXINE SODIUM
  11. ALLOPURINOL. [Concomitant]
     Active Substance: ALLOPURINOL
  12. CALCITRIOL. [Concomitant]
     Active Substance: CALCITRIOL

REACTIONS (4)
  - Ventricular tachycardia [Recovered/Resolved]
  - Ventricular fibrillation [Recovered/Resolved]
  - Palpitations [Unknown]
  - Heart rate irregular [Unknown]

NARRATIVE: CASE EVENT DATE: 2014
